FAERS Safety Report 5306619-8 (Version None)
Quarter: 2007Q2

REPORT INFORMATION
  Report Type: 
  Country: None (occurrence: None)
  Receive Date: 20070418
  Receipt Date: 20070410
  Transmission Date: 20071010
  Serious: Yes (Life-Threatening)
  Sender: FDA-Public Use
  Company Number: 2007SP006756

PATIENT
  Age: 60 Year
  Sex: Male
  Weight: 67 kg

DRUGS (12)
  1. TEMODAL [Suspect]
     Indication: GLIOBLASTOMA MULTIFORME
     Dosage: SEE IMAGE
     Route: 048
     Dates: start: 20060920, end: 20060922
  2. TEMODAL [Suspect]
     Indication: RECURRENT CANCER
     Dosage: SEE IMAGE
     Route: 048
     Dates: start: 20060920, end: 20060922
  3. TEMODAL [Suspect]
     Indication: GLIOBLASTOMA MULTIFORME
     Dosage: SEE IMAGE
     Route: 048
     Dates: start: 20061105, end: 20061109
  4. TEMODAL [Suspect]
     Indication: RECURRENT CANCER
     Dosage: SEE IMAGE
     Route: 048
     Dates: start: 20061105, end: 20061109
  5. TEMODAL [Suspect]
     Indication: GLIOBLASTOMA MULTIFORME
     Dosage: SEE IMAGE
     Route: 048
     Dates: start: 20061222, end: 20061226
  6. TEMODAL [Suspect]
     Indication: RECURRENT CANCER
     Dosage: SEE IMAGE
     Route: 048
     Dates: start: 20061222, end: 20061226
  7. TEMODAL [Suspect]
     Indication: GLIOBLASTOMA MULTIFORME
     Dosage: SEE IMAGE
     Route: 048
     Dates: start: 20070119, end: 20070123
  8. TEMODAL [Suspect]
     Indication: RECURRENT CANCER
     Dosage: SEE IMAGE
     Route: 048
     Dates: start: 20070119, end: 20070123
  9. EXCERGRAN [Concomitant]
  10. SELENICA-R [Concomitant]
  11. GASTER [Concomitant]
  12. MYSTAN [Concomitant]

REACTIONS (4)
  - DISSEMINATED INTRAVASCULAR COAGULATION [None]
  - PNEUMONIA ASPIRATION [None]
  - SEPSIS [None]
  - VOMITING [None]
